FAERS Safety Report 18816921 (Version 2)
Quarter: 2021Q1

REPORT INFORMATION
  Report Type: Spontaneous
  Country: FI (occurrence: FI)
  Receive Date: 20210201
  Receipt Date: 20210203
  Transmission Date: 20210419
  Serious: Yes (Death)
  Sender: FDA-Public Use
  Company Number: FI-ASTRAZENECA-2021A021872

PATIENT
  Age: 46 Year
  Sex: Female

DRUGS (2)
  1. KETIPINOR [Suspect]
     Active Substance: QUETIAPINE FUMARATE
     Route: 065
  2. ROACCUTAN [Suspect]
     Active Substance: ISOTRETINOIN
     Indication: ACNE
     Route: 065

REACTIONS (4)
  - Depressed mood [Fatal]
  - Suicide attempt [Fatal]
  - Completed suicide [Fatal]
  - Suicidal ideation [Fatal]
